FAERS Safety Report 9661091 (Version 2)
Quarter: 2013Q4

REPORT INFORMATION
  Report Type: Spontaneous
  Country: JP (occurrence: JP)
  Receive Date: 20131031
  Receipt Date: 20131106
  Transmission Date: 20140711
  Serious: Yes (Other)
  Sender: FDA-Public Use
  Company Number: PHHY2013JP120055

PATIENT
  Sex: Female

DRUGS (1)
  1. PACLITAXEL [Suspect]
     Indication: NEOPLASM MALIGNANT

REACTIONS (2)
  - Cataract [Unknown]
  - Vision blurred [Unknown]
